FAERS Safety Report 23129065 (Version 1)
Quarter: 2023Q4

REPORT INFORMATION
  Report Type: Spontaneous
  Country: None (occurrence: NL)
  Receive Date: 20231031
  Receipt Date: 20231031
  Transmission Date: 20240110
  Serious: Yes (Hospitalization, Other)
  Sender: FDA-Public Use
  Company Number: NL-Nova Laboratories Limited-2147547

PATIENT
  Sex: Male

DRUGS (28)
  1. PURIXAN [Suspect]
     Active Substance: MERCAPTOPURINE
     Indication: Crohn^s disease
  2. AZATHIOPRINE [Suspect]
     Active Substance: AZATHIOPRINE
     Dates: start: 201509
  3. VEDOLIZUMAB [Suspect]
     Active Substance: VEDOLIZUMAB
  4. VEDOLIZUMAB [Suspect]
     Active Substance: VEDOLIZUMAB
     Dates: start: 201606
  5. VEDOLIZUMAB [Suspect]
     Active Substance: VEDOLIZUMAB
     Dates: start: 201706, end: 201804
  6. VEDOLIZUMAB [Suspect]
     Active Substance: VEDOLIZUMAB
     Dates: start: 201704
  7. ADALIMUMAB [Suspect]
     Active Substance: ADALIMUMAB\ISOPROPYL ALCOHOL
     Route: 058
     Dates: start: 201909, end: 201909
  8. ADALIMUMAB [Suspect]
     Active Substance: ADALIMUMAB\ISOPROPYL ALCOHOL
     Route: 058
     Dates: start: 201411
  9. ADALIMUMAB [Suspect]
     Active Substance: ADALIMUMAB\ISOPROPYL ALCOHOL
     Route: 058
     Dates: start: 201910, end: 202007
  10. PREDNISOLONE ACETATE [Suspect]
     Active Substance: PREDNISOLONE ACETATE
     Dates: start: 201411
  11. PREDNISOLONE ACETATE [Suspect]
     Active Substance: PREDNISOLONE ACETATE
     Dates: start: 201509
  12. PREDNISOLONE ACETATE [Suspect]
     Active Substance: PREDNISOLONE ACETATE
     Dates: start: 201604
  13. PREDNISOLONE ACETATE [Suspect]
     Active Substance: PREDNISOLONE ACETATE
     Dates: start: 201706
  14. PREDNISOLONE ACETATE [Suspect]
     Active Substance: PREDNISOLONE ACETATE
     Dates: start: 201709
  15. PREDNISOLONE ACETATE [Suspect]
     Active Substance: PREDNISOLONE ACETATE
     Route: 054
     Dates: start: 201709, end: 201709
  16. PREDNISOLONE ACETATE [Suspect]
     Active Substance: PREDNISOLONE ACETATE
     Dates: start: 201901
  17. PREDNISOLONE ACETATE [Suspect]
     Active Substance: PREDNISOLONE ACETATE
     Dates: start: 201909
  18. USTEKINUMAB [Suspect]
     Active Substance: USTEKINUMAB
  19. USTEKINUMAB [Suspect]
     Active Substance: USTEKINUMAB
     Dates: start: 201804
  20. BECLOMETHASONE DIPROPIONATE [Suspect]
     Active Substance: BECLOMETHASONE DIPROPIONATE
     Dates: start: 201509
  21. THIOGUANINE ANHYDROUS [Suspect]
     Active Substance: THIOGUANINE ANHYDROUS
     Dates: start: 201909
  22. STELARA [Suspect]
     Active Substance: USTEKINUMAB
     Dates: start: 201811
  23. STELARA [Suspect]
     Active Substance: USTEKINUMAB
     Route: 058
     Dates: start: 201904
  24. STELARA [Suspect]
     Active Substance: USTEKINUMAB
     Route: 042
     Dates: start: 201903
  25. METHOTREXATE [Suspect]
     Active Substance: METHOTREXATE
     Dates: start: 202008
  26. INFLIXIMAB [Suspect]
     Active Substance: INFLIXIMAB
     Dates: start: 2015, end: 2016
  27. INFLIXIMAB [Suspect]
     Active Substance: INFLIXIMAB
     Dates: start: 201503, end: 2015
  28. INFLIXIMAB [Suspect]
     Active Substance: INFLIXIMAB
     Dates: start: 202008

REACTIONS (15)
  - Hospitalisation [Unknown]
  - Colitis [Unknown]
  - Enteritis [Unknown]
  - Pancreatitis [Unknown]
  - Faecal calprotectin increased [Recovering/Resolving]
  - Appendicectomy [Unknown]
  - Inflammation [Unknown]
  - Fatigue [Not Recovered/Not Resolved]
  - Frequent bowel movements [Not Recovered/Not Resolved]
  - Adverse drug reaction [Unknown]
  - Crohn^s disease [Not Recovered/Not Resolved]
  - Therapeutic product effect decreased [Not Recovered/Not Resolved]
  - Therapeutic product effect decreased [Not Recovered/Not Resolved]
  - Therapeutic product effect decreased [Not Recovered/Not Resolved]
  - Off label use [None]

NARRATIVE: CASE EVENT DATE: 20141101
